FAERS Safety Report 5088528-5 (Version None)
Quarter: 2006Q3

REPORT INFORMATION
  Report Type: 
  Country: None (occurrence: None)
  Receive Date: 20060822
  Receipt Date: 20060808
  Transmission Date: 20061208
  Serious: Yes (Hospitalization, Other)
  Sender: FDA-Public Use
  Company Number: 2006AL002218

PATIENT
  Age: 71 Year
  Sex: Female

DRUGS (5)
  1. NAPROXEN [Suspect]
     Indication: ARTHRITIS
     Dosage: 375 MG; BID; PO
     Route: 048
  2. AMITRIPTYLINE HCL [Concomitant]
  3. FUROSEMIDE [Concomitant]
  4. MEDROXYPROGESTERONE [Concomitant]
  5. TAMOXIFEN CITRATE [Concomitant]

REACTIONS (3)
  - GASTRIC ULCER [None]
  - HAEMOGLOBIN DECREASED [None]
  - OESOPHAGEAL ULCER [None]
